FAERS Safety Report 16608470 (Version 2)
Quarter: 2019Q4

REPORT INFORMATION
  Report Type: Spontaneous
  Country: US (occurrence: US)
  Receive Date: 20190722
  Receipt Date: 20191011
  Transmission Date: 20200122
  Serious: No
  Sender: FDA-Public Use
  Company Number: US-PFIZER INC-2016463014

PATIENT
  Age: 71 Year
  Sex: Female
  Weight: 75 kg

DRUGS (43)
  1. COLCHICINE. [Concomitant]
     Active Substance: COLCHICINE
     Dosage: 0.6 MG, UNK (1 IN THE MORNING)
  2. DULCOLAX STOOL SOFTENER [Concomitant]
     Active Substance: DOCUSATE SODIUM
     Dosage: UNK
     Dates: start: 2018
  3. MANGANESE [Concomitant]
     Active Substance: MANGANESE CHLORIDE
     Dosage: 1.8 MG, UNK
  4. BUPIVACAINE. [Concomitant]
     Active Substance: BUPIVACAINE
     Indication: PAIN
     Dosage: UNK UNK, AS NEEDED
  5. LYRICA [Suspect]
     Active Substance: PREGABALIN
     Indication: FIBROMYALGIA
     Dosage: 200 MG, 2X/DAY (200MG ONCE CAP TWICE DAILY)
     Route: 048
  6. ALLEGRA [Concomitant]
     Active Substance: FEXOFENADINE HYDROCHLORIDE
     Dosage: 180 MG, 1X/DAY(1 IN THE MORNING)
  7. VITAMIN D3 [Concomitant]
     Active Substance: CHOLECALCIFEROL
     Dosage: 4000 IU, 1X/DAY
  8. DESONIDE. [Concomitant]
     Active Substance: DESONIDE
     Indication: DRY EYE
     Dosage: 15 G, AS NEEDED (APPLY 1 TO 2 TIMES A DAY)
     Route: 061
  9. SUMATRIPTAN. [Concomitant]
     Active Substance: SUMATRIPTAN
     Indication: MIGRAINE
     Dosage: 50 MG, AS NEEDED (1 TAB AT ONSET, 1 EVERY 2HRS-MAX 4 TAB)
  10. MAGNESIUM [Concomitant]
     Active Substance: MAGNESIUM
     Dosage: 50 MG, UNK
  11. MIRALAX [Concomitant]
     Active Substance: POLYETHYLENE GLYCOL 3350
     Dosage: 1 DF, AS NEEDED
  12. FLUTICASON [Concomitant]
     Active Substance: FLUTICASONE
     Dosage: UNK
  13. NIFEDICAL XL [Concomitant]
     Active Substance: NIFEDIPINE
     Dosage: UNK
     Dates: end: 20160417
  14. ZINC. [Concomitant]
     Active Substance: ZINC
     Dosage: 7.5 MG, UNK
  15. DICLOFENAC [Concomitant]
     Active Substance: DICLOFENAC
     Indication: PAIN
     Dosage: UNK UNK, AS NEEDED
  16. CYCLOBENZAPRINE. [Concomitant]
     Active Substance: CYCLOBENZAPRINE
     Indication: PAIN
     Dosage: UNK UNK, AS NEEDED
  17. CALCIUM + VITAMIN D3 [Concomitant]
     Active Substance: CALCIUM CARBONATE\CHOLECALCIFEROL
     Dosage: UNK, 1X/DAY (600MG CALCIUM /1600 IU VITAMIN D3, 2 IN THE MORNING))
  18. BENADRYL [Concomitant]
     Active Substance: DIPHENHYDRAMINE HYDROCHLORIDE
     Indication: HYPERSENSITIVITY
     Dosage: 50 MG, 1X/DAY (25 MG 2 IN EVENING)
  19. ZYRTEC [Concomitant]
     Active Substance: CETIRIZINE HYDROCHLORIDE
     Dosage: UNK
     Dates: start: 2018
  20. EPIPEN [Concomitant]
     Active Substance: EPINEPHRINE
     Dosage: UNK
     Dates: end: 20160216
  21. TRIAMTERENE/HYDROCHLOROTHIAZIDE [Concomitant]
     Active Substance: HYDROCHLOROTHIAZIDE\TRIAMTERENE
     Dosage: UNK UNK, 1X/DAY (TRIMTRERENE 37.5MG/ HYDROCHLOROTHIAZIDE 25MG 1 IN MORNING)
  22. BENADRYL [Concomitant]
     Active Substance: DIPHENHYDRAMINE HYDROCHLORIDE
     Dosage: UNK UNK, AS NEEDED (25 MG % 2 EVERY 4 TO 6 HOURS)
  23. HALOBETASOL PROPIONATE. [Concomitant]
     Active Substance: HALOBETASOL PROPIONATE
     Indication: RASH
     Dosage: UNK, AS NEEDED (APPLY TO HANDS AT NIGHT)
  24. PREDNISONE. [Concomitant]
     Active Substance: PREDNISONE
     Dosage: UNK
     Dates: start: 201907
  25. TENOVATE [Concomitant]
     Dosage: UNK
  26. AZELASTINE HYDROCHLORIDE. [Concomitant]
     Active Substance: AZELASTINE HYDROCHLORIDE
     Dosage: UNK, 2X/DAY 137 MCG (.1%) 2 SPRAYS IN MORNING AND EVENING)
     Dates: start: 201901
  27. AMITRIPTYLINE [Concomitant]
     Active Substance: AMITRIPTYLINE
     Indication: SLEEP DISORDER
     Dosage: 25 MG, 1X/DAY (AT NIGHT)
  28. HYDROCORTISONE. [Concomitant]
     Active Substance: HYDROCORTISONE
     Indication: URTICARIA
     Dosage: 2.5 %, AS NEEDED
  29. PEPCID AC [Concomitant]
     Active Substance: FAMOTIDINE
     Dosage: UNK
  30. COPPER [Concomitant]
     Active Substance: COPPER
     Dosage: 1 MG, UNK
  31. ADVIL [IBUPROFEN] [Concomitant]
     Active Substance: IBUPROFEN
     Dosage: UNK
  32. LIPITOR [Concomitant]
     Active Substance: ATORVASTATIN CALCIUM
     Dosage: 20 MG, UNK
  33. CYMBALTA [Concomitant]
     Active Substance: DULOXETINE HYDROCHLORIDE
     Dosage: 60 MG, UNK
  34. AMBIEN [Concomitant]
     Active Substance: ZOLPIDEM TARTRATE
     Dosage: 10 MG, UNK
  35. DULCOLAX STOOL SOFTENER [Concomitant]
     Active Substance: DOCUSATE SODIUM
     Dosage: UNK
     Dates: end: 20160610
  36. TRIAMCINOLONE [Concomitant]
     Active Substance: TRIAMCINOLONE
     Dosage: UNK
     Dates: end: 20160428
  37. HYDROCODONE/ACETAMINOPHEN [Concomitant]
     Active Substance: ACETAMINOPHEN\HYDROCODONE
     Indication: PAIN
     Dosage: UNK, AS NEEDED HYDROCODONE 5, ACETAMINOPHEN 325)
  38. BACLOFEN. [Concomitant]
     Active Substance: BACLOFEN
     Indication: PAIN
     Dosage: UNK UNK, AS NEEDED
  39. ROBAXIN [Concomitant]
     Active Substance: METHOCARBAMOL
     Dosage: 500 MG, UNK
  40. TOPIRAMATE. [Concomitant]
     Active Substance: TOPIRAMATE
     Dosage: 25 MG, UNK
  41. LEVOTHYROXINE. [Concomitant]
     Active Substance: LEVOTHYROXINE
     Dosage: 50 UG, 1X/DAY (0.05MG/50MCG, 1 IN MORNING- EMPTY STOMACH)
  42. VITAMIN C [Concomitant]
     Active Substance: ASCORBIC ACID
     Dosage: 2000 IU, 1X/DAY
  43. ZANTAC [Concomitant]
     Active Substance: RANITIDINE HYDROCHLORIDE
     Dosage: UNK

REACTIONS (2)
  - Malaise [Not Recovered/Not Resolved]
  - Laryngitis [Recovered/Resolved]

NARRATIVE: CASE EVENT DATE: 201906
